FAERS Safety Report 7786536-4 (Version None)
Quarter: 2011Q3

REPORT INFORMATION
  Report Type: 
  Country: None (occurrence: None)
  Receive Date: 20110929
  Receipt Date: 20110923
  Transmission Date: 20111222
  Serious: Yes (Hospitalization)
  Sender: FDA-Public Use
  Company Number: US-GLAXOSMITHKLINE-A0946070A

PATIENT
  Age: 83 Year
  Sex: Female

DRUGS (4)
  1. WELLBUTRIN [Concomitant]
     Dosage: 50MG PER DAY
  2. ROMIPLOSTIM [Concomitant]
     Indication: IDIOPATHIC THROMBOCYTOPENIC PURPURA
     Dates: end: 20110620
  3. VITAMIN B-12 [Concomitant]
     Dosage: 1MG MONTHLY
  4. PROMACTA [Suspect]
     Indication: IDIOPATHIC THROMBOCYTOPENIC PURPURA
     Dates: start: 20110701

REACTIONS (2)
  - SUBDURAL HAEMATOMA [None]
  - FALL [None]
